FAERS Safety Report 15083916 (Version 3)
Quarter: 2018Q4

REPORT INFORMATION
  Report Type: Report from Study
  Country: US (occurrence: US)
  Receive Date: 20180628
  Receipt Date: 20181231
  Transmission Date: 20190204
  Serious: No
  Sender: FDA-Public Use
  Company Number: US-CLOVIS ONCOLOGY-CLO-2018-000546

PATIENT
  Age: 47 Year
  Sex: Female

DRUGS (1)
  1. RUBRACA [Suspect]
     Active Substance: RUCAPARIB CAMSYLATE
     Indication: OVARIAN CANCER
     Dosage: 600 MG, BID
     Route: 048
     Dates: start: 20180516

REACTIONS (6)
  - Nausea [Recovering/Resolving]
  - Erythema [Not Recovered/Not Resolved]
  - Anxiety [Unknown]
  - Product dose omission [Unknown]
  - Dysgeusia [Recovering/Resolving]
  - Blood calcium decreased [Unknown]

NARRATIVE: CASE EVENT DATE: 2018
